FAERS Safety Report 18407864 (Version 1)
Quarter: 2020Q4

REPORT INFORMATION
  Report Type: Spontaneous
  Country: US (occurrence: US)
  Receive Date: 20201020
  Receipt Date: 20201020
  Transmission Date: 20210114
  Serious: No
  Sender: FDA-Public Use
  Company Number: US-TAKEDA-2020TUS043772

PATIENT
  Age: 62 Year
  Sex: Female
  Weight: 71 kg

DRUGS (2)
  1. DEXILANT [Suspect]
     Active Substance: DEXLANSOPRAZOLE
     Indication: ULCER
     Dosage: 60 MILLIGRAM, BID
     Route: 065
     Dates: start: 20200924
  2. DEXILANT [Suspect]
     Active Substance: DEXLANSOPRAZOLE
     Indication: OESOPHAGEAL ULCER

REACTIONS (7)
  - Pain [Unknown]
  - Off label use [Unknown]
  - Oropharyngeal pain [Unknown]
  - Headache [Unknown]
  - Fatigue [Unknown]
  - Prescribed overdose [Unknown]
  - Illness [Unknown]

NARRATIVE: CASE EVENT DATE: 202009
